FAERS Safety Report 4937460-3 (Version None)
Quarter: 2006Q1

REPORT INFORMATION
  Report Type: 
  Country: None (occurrence: None)
  Receive Date: 20060309
  Receipt Date: 20050421
  Transmission Date: 20060701
  Serious: Yes (Death, Hospitalization, Other)
  Sender: FDA-Public Use
  Company Number: PHFR2005GB01592

PATIENT
  Age: 23 Year
  Sex: Male

DRUGS (4)
  1. CLOZARIL [Suspect]
     Indication: SCHIZOPHRENIA
     Dosage: 550MG/DAY
     Route: 048
     Dates: start: 20010409, end: 20050401
  2. HALOPERIDOL [Concomitant]
     Dosage: UNK, PRN
  3. ALCOHOL [Concomitant]
  4. CITALOPRAM [Concomitant]

REACTIONS (42)
  - ANAEMIA [None]
  - BLOOD CREATINE PHOSPHOKINASE INCREASED [None]
  - BLOOD CREATININE INCREASED [None]
  - BLOOD ELECTROLYTES ABNORMAL [None]
  - BLOOD UREA INCREASED [None]
  - BRONCHOPNEUMONIA [None]
  - C-REACTIVE PROTEIN INCREASED [None]
  - CARDIO-RESPIRATORY ARREST [None]
  - CONFUSIONAL STATE [None]
  - CONTUSION [None]
  - DEHYDRATION [None]
  - DELIRIUM TREMENS [None]
  - DISORIENTATION [None]
  - DYSPNOEA [None]
  - EXCORIATION [None]
  - FACE INJURY [None]
  - FACIAL BONES FRACTURE [None]
  - GAIT DISTURBANCE [None]
  - HAEMOGLOBIN DECREASED [None]
  - HALLUCINATION [None]
  - HEPATIC CONGESTION [None]
  - HEPATIC ENZYME ABNORMAL [None]
  - HEPATIC NECROSIS [None]
  - HEPATORENAL FAILURE [None]
  - INFECTION [None]
  - LIVER DISORDER [None]
  - LOWER RESPIRATORY TRACT INFECTION [None]
  - LUNG CONSOLIDATION [None]
  - MOUTH INJURY [None]
  - NEUTROPHIL COUNT INCREASED [None]
  - ORAL MUCOSAL DISORDER [None]
  - PERIORBITAL HAEMATOMA [None]
  - PSYCHOTIC DISORDER [None]
  - PULMONARY CONGESTION [None]
  - PULMONARY OEDEMA [None]
  - PURULENT DISCHARGE [None]
  - RENAL FUNCTION TEST ABNORMAL [None]
  - RENAL IMPAIRMENT [None]
  - RHABDOMYOLYSIS [None]
  - SCHIZOPHRENIA [None]
  - SEPSIS [None]
  - WHITE BLOOD CELL COUNT INCREASED [None]
